FAERS Safety Report 5193148-8 (Version None)
Quarter: 2006Q4

REPORT INFORMATION
  Report Type: 
  Country: None (occurrence: None)
  Receive Date: 20061228
  Receipt Date: 20060530
  Transmission Date: 20070319
  Serious: No
  Sender: FDA-Public Use
  Company Number: US-GLAXOSMITHKLINE-A0607281A

PATIENT
  Age: 71 Year
  Sex: Male
  Weight: 131.4 kg

DRUGS (4)
  1. AVODART [Suspect]
     Indication: BENIGN PROSTATIC HYPERPLASIA
     Dosage: .5MG UNKNOWN
     Route: 048
     Dates: start: 20050901
  2. AVAPRO [Concomitant]
     Route: 048
  3. DYAZIDE [Concomitant]
     Route: 048
  4. ZETIA [Concomitant]
     Route: 048

REACTIONS (3)
  - ALOPECIA [None]
  - BREAST SWELLING [None]
  - PENIS DISORDER [None]
